FAERS Safety Report 20120434 (Version 1)
Quarter: 2021Q4

REPORT INFORMATION
  Report Type: Spontaneous
  Country: US (occurrence: None)
  Receive Date: 20211126
  Receipt Date: 20211126
  Transmission Date: 20220303
  Serious: Yes (Hospitalization, Other)
  Sender: FDA-Public Use
  Company Number: None

PATIENT
  Age: 77 Year
  Sex: Male
  Weight: 84.15 kg

DRUGS (9)
  1. CASIRIVIMAB\IMDEVIMAB [Suspect]
     Active Substance: CASIRIVIMAB\IMDEVIMAB
     Indication: COVID-19
     Dosage: FREQUENCY : ONCE;?
     Route: 041
     Dates: start: 20211117, end: 20211117
  2. APIXABAN [Concomitant]
     Active Substance: APIXABAN
     Dates: start: 20191220
  3. TAMSULOSIN [Concomitant]
     Active Substance: TAMSULOSIN
     Dates: start: 20170210
  4. MESALAMINE [Concomitant]
     Active Substance: MESALAMINE
     Dates: start: 20200706
  5. ATORVASTATIN [Concomitant]
     Active Substance: ATORVASTATIN
     Dates: start: 20171204
  6. METHYLCOBALAMIN [Concomitant]
     Active Substance: METHYLCOBALAMIN
  7. VALACYCLOVIR [Concomitant]
     Active Substance: VALACYCLOVIR HYDROCHLORIDE
     Dates: start: 20190710
  8. SILDENAFIL [Concomitant]
     Active Substance: SILDENAFIL
     Dates: start: 20170210
  9. FLECAINIDE [Concomitant]
     Active Substance: FLECAINIDE
     Dates: start: 20200227, end: 20200227

REACTIONS (12)
  - Hypoxia [None]
  - Fluid intake reduced [None]
  - Rales [None]
  - Tachypnoea [None]
  - Chest X-ray abnormal [None]
  - Lung infiltration [None]
  - Pneumonia bacterial [None]
  - Superinfection [None]
  - Sepsis [None]
  - Hepatic enzyme increased [None]
  - Pleural effusion [None]
  - Atrial fibrillation [None]

NARRATIVE: CASE EVENT DATE: 20211121
